FAERS Safety Report 23416302 (Version 1)
Quarter: 2024Q1

REPORT INFORMATION
  Report Type: Spontaneous
  Country: US (occurrence: None)
  Receive Date: 20240117
  Receipt Date: 20240117
  Transmission Date: 20240409
  Serious: Yes (Life-Threatening)
  Sender: FDA-Public Use
  Company Number: None

PATIENT
  Age: 14 Year
  Sex: Female
  Weight: 47.7 kg

DRUGS (3)
  1. FLUOXETINE [Suspect]
     Active Substance: FLUOXETINE HYDROCHLORIDE
     Indication: Anxiety
     Dosage: FREQUENCY : DAILY;?
     Route: 048
     Dates: start: 20231217, end: 20240113
  2. FLUOXETINE [Suspect]
     Active Substance: FLUOXETINE HYDROCHLORIDE
     Indication: Depression
  3. ESCITALOPRAM [Concomitant]
     Active Substance: ESCITALOPRAM OXALATE

REACTIONS (5)
  - Hypersensitivity [None]
  - Pharyngeal swelling [None]
  - Abdominal pain upper [None]
  - Oesophageal pain [None]
  - Anaphylactic reaction [None]

NARRATIVE: CASE EVENT DATE: 20240113
